FAERS Safety Report 11645752 (Version 1)
Quarter: 2015Q4

REPORT INFORMATION
  Report Type: Spontaneous
  Country: CN (occurrence: CN)
  Receive Date: 20151020
  Receipt Date: 20151020
  Transmission Date: 20160304
  Serious: Yes (Hospitalization)
  Sender: FDA-Public Use
  Company Number: CN-ABBVIE-15P-035-1485121-00

PATIENT
  Age: 17 Year
  Sex: Male

DRUGS (2)
  1. RISPERIDONE. [Concomitant]
     Active Substance: RISPERIDONE
     Indication: PRODUCT USED FOR UNKNOWN INDICATION
  2. DEPAKINE CHRONO [Suspect]
     Active Substance: VALPROATE SODIUM
     Indication: PROPHYLAXIS
     Route: 048
     Dates: start: 20150414, end: 20150507

REACTIONS (2)
  - Conjunctivitis [Recovering/Resolving]
  - Cerumen impaction [Recovering/Resolving]

NARRATIVE: CASE EVENT DATE: 20150525
